FAERS Safety Report 8610171 (Version 4)
Quarter: 2013Q2

REPORT INFORMATION
  Report Type: Spontaneous
  Country: DK (occurrence: JP)
  Receive Date: 20120612
  Receipt Date: 20130620
  Transmission Date: 20140414
  Serious: Yes (Life-Threatening)
  Sender: FDA-Public Use
  Company Number: JP-FRI-1000031190

PATIENT
  Age: 86 Year
  Sex: Male
  Weight: 48 kg

DRUGS (6)
  1. LEXAPRO [Suspect]
     Indication: DEPRESSION
     Dosage: 10 MG
     Route: 048
     Dates: start: 20120403, end: 20120409
  2. JZOLOFT [Suspect]
     Indication: DEPRESSION
     Dosage: 50 MG
     Route: 048
     Dates: start: 20120330, end: 20120402
  3. GASCON [Concomitant]
     Indication: ABDOMINAL PAIN
     Dosage: 120 MG
     Route: 048
     Dates: start: 20120330, end: 20120409
  4. DOGMATYL [Concomitant]
     Indication: DEPRESSION
     Dosage: 100 MG
     Route: 048
     Dates: start: 20120328, end: 20120409
  5. TAKEPRON [Concomitant]
     Indication: GASTRIC ULCER
     Dosage: 15 MG
     Route: 048
     Dates: start: 20120322, end: 20120409
  6. PREDONINE [Concomitant]
     Indication: STILL^S DISEASE ADULT ONSET
     Dosage: 10 MG
     Route: 042
     Dates: start: 20120314

REACTIONS (1)
  - Inappropriate antidiuretic hormone secretion [Recovering/Resolving]
